FAERS Safety Report 8345931-5 (Version None)
Quarter: 2012Q2

REPORT INFORMATION
  Report Type: 
  Country: None (occurrence: None)
  Receive Date: 20120507
  Receipt Date: 20120426
  Transmission Date: 20120825
  Serious: No
  Sender: FDA-Public Use
  Company Number: 7125504

PATIENT
  Sex: Female

DRUGS (1)
  1. LEVOTHYROXINE SODIUM [Suspect]
     Indication: THYROIDECTOMY
     Dosage: (1 IN 1 D), ORAL
     Route: 048
     Dates: start: 20120201, end: 20120201

REACTIONS (3)
  - OEDEMA [None]
  - FORMICATION [None]
  - HYPOCALCAEMIA [None]
